FAERS Safety Report 17895848 (Version 1)
Quarter: 2020Q2

REPORT INFORMATION
  Report Type: Spontaneous
  Country: US (occurrence: US)
  Receive Date: 20200615
  Receipt Date: 20200615
  Transmission Date: 20200714
  Serious: No
  Sender: FDA-Public Use
  Company Number: None

PATIENT
  Age: 62 Year
  Sex: Female
  Weight: 84.6 kg

DRUGS (8)
  1. PROGESTERONE. [Concomitant]
     Active Substance: PROGESTERONE
  2. RED YEAST  RICE [Concomitant]
     Active Substance: DIETARY SUPPLEMENT
  3. MG [Concomitant]
     Active Substance: MAGNESIUM
  4. ESTRADIOL. [Concomitant]
     Active Substance: ESTRADIOL
  5. CINNAMON. [Concomitant]
     Active Substance: CINNAMON
  6. CALCIUM [Concomitant]
     Active Substance: CALCIUM
  7. NP THYROID [Suspect]
     Active Substance: LEVOTHYROXINE\LIOTHYRONINE
     Indication: HYPOTHYROIDISM
     Dosage: ?          QUANTITY:90 TABLET(S);?
     Route: 048
     Dates: start: 20200423, end: 20200614
  8. ZINC. [Concomitant]
     Active Substance: ZINC

REACTIONS (4)
  - Dizziness [None]
  - Heart rate irregular [None]
  - Fatigue [None]
  - Hypertension [None]

NARRATIVE: CASE EVENT DATE: 20200502
